FAERS Safety Report 10068757 (Version 3)
Quarter: 2014Q3

REPORT INFORMATION
  Report Type: Report from Study
  Country: US (occurrence: US)
  Receive Date: 20140409
  Receipt Date: 20140918
  Transmission Date: 20150326
  Serious: Yes (Other)
  Sender: FDA-Public Use
  Company Number: US-BRISTOL-MYERS SQUIBB COMPANY-20592283

PATIENT
  Age: 53 Year
  Sex: Male
  Weight: 102.6 kg

DRUGS (1)
  1. IPILIMUMAB [Suspect]
     Active Substance: IPILIMUMAB
     Indication: MALIGNANT MELANOMA
     Dosage: OVER 90 MINS, Q 3 WEEKS X 4 DOSES,?TOTAL DOSE 40 MG, LAST ADMINISTERED ON 19-FEB-2014?10MAR14
     Route: 042
     Dates: start: 20131216

REACTIONS (1)
  - Marrow hyperplasia [Not Recovered/Not Resolved]

NARRATIVE: CASE EVENT DATE: 20140310
